FAERS Safety Report 4544281-2 (Version None)
Quarter: 2004Q4

REPORT INFORMATION
  Report Type: 
  Country: None (occurrence: None)
  Receive Date: 20041230
  Receipt Date: 20041222
  Transmission Date: 20050328
  Serious: Yes (Hospitalization, Other)
  Sender: FDA-Public Use
  Company Number: 2004-11-1476

PATIENT
  Age: 54 Year
  Sex: Male

DRUGS (4)
  1. CELESTAMINE TAB [Suspect]
     Indication: UPPER RESPIRATORY TRACT INFECTION
     Dosage: 2 TAB ORAL
     Route: 048
     Dates: start: 20030524
  2. CIPROFLOXACIN HYDROCHLORIDE [Concomitant]
  3. VIBRAMYCIN [Concomitant]
  4. LOXONIN [Concomitant]

REACTIONS (2)
  - CONFUSIONAL STATE [None]
  - CONVULSION [None]
